FAERS Safety Report 5612556-1 (Version None)
Quarter: 2008Q1

REPORT INFORMATION
  Report Type: 
  Country: None (occurrence: None)
  Receive Date: 20080201
  Receipt Date: 20080201
  Transmission Date: 20080703
  Serious: No
  Sender: FDA-Public Use
  Company Number: None

PATIENT
  Age: 83 Year
  Sex: Male
  Weight: 73.03 kg

DRUGS (1)
  1. WARFARIN SODIUM [Suspect]
     Indication: ATRIAL FIBRILLATION
     Dosage: 6MG PM PO
     Route: 048
     Dates: start: 20071206, end: 20080102

REACTIONS (8)
  - ASTHENIA [None]
  - DYSPNOEA EXERTIONAL [None]
  - GASTROINTESTINAL HAEMORRHAGE [None]
  - HAEMOLYTIC ANAEMIA [None]
  - INTERNATIONAL NORMALISED RATIO INCREASED [None]
  - JOINT SWELLING [None]
  - MEDICAL DEVICE COMPLICATION [None]
  - PROTHROMBIN TIME PROLONGED [None]
